FAERS Safety Report 14949965 (Version 1)
Quarter: 2018Q2

REPORT INFORMATION
  Report Type: Report from Study
  Country: None (occurrence: US)
  Receive Date: 20180530
  Receipt Date: 20180530
  Transmission Date: 20180711
  Serious: Yes (Other)
  Sender: FDA-Public Use
  Company Number: US-ABBVIE-18K-163-2278274-00

PATIENT
  Age: 71 Year
  Sex: Female

DRUGS (1)
  1. HUMIRA [Suspect]
     Active Substance: ADALIMUMAB
     Indication: PSORIASIS
     Route: 058

REACTIONS (8)
  - Blood pressure increased [Unknown]
  - Increased tendency to bruise [Recovering/Resolving]
  - Blood glucose increased [Recovering/Resolving]
  - Joint swelling [Recovering/Resolving]
  - Skin exfoliation [Unknown]
  - Dry skin [Unknown]
  - Peripheral swelling [Recovering/Resolving]
  - Tremor [Unknown]

NARRATIVE: CASE EVENT DATE: 20180226
